FAERS Safety Report 9659610 (Version 1)
Quarter: 2013Q4

REPORT INFORMATION
  Report Type: Spontaneous
  Country: US (occurrence: None)
  Receive Date: 20131029
  Receipt Date: 20131029
  Transmission Date: 20140711
  Serious: Yes (Other)
  Sender: FDA-Public Use
  Company Number: 2013100091

PATIENT
  Age: 69 Year
  Sex: Female
  Weight: 81.65 kg

DRUGS (1)
  1. DYMISTA [Suspect]
     Dosage: IN
     Dates: start: 20131011, end: 201310

REACTIONS (8)
  - Burning sensation [None]
  - Throat irritation [None]
  - Eye pain [None]
  - Toothache [None]
  - Oral pain [None]
  - Oropharyngeal pain [None]
  - Hypertension [None]
  - Headache [None]
